FAERS Safety Report 4407187-5 (Version None)
Quarter: 2004Q3

REPORT INFORMATION
  Report Type: 
  Country: None (occurrence: None)
  Receive Date: 20040721
  Receipt Date: 20040709
  Transmission Date: 20050211
  Serious: Yes (Other)
  Sender: FDA-Public Use
  Company Number: SU-2004-002511

PATIENT
  Age: 67 Year
  Sex: Female
  Weight: 58.9676 kg

DRUGS (4)
  1. WELCHOL [Suspect]
     Indication: HYPERCHOLESTEROLAEMIA
     Dosage: 1250 MG ONCE PO
     Route: 048
     Dates: start: 20040709, end: 20040709
  2. LIPITOR [Concomitant]
  3. ESTRADIOL [Concomitant]
  4. ACTONEL [Concomitant]

REACTIONS (1)
  - HYPERSENSITIVITY [None]
